FAERS Safety Report 6385549-7 (Version None)
Quarter: 2009Q4

REPORT INFORMATION
  Report Type: 
  Country: None (occurrence: None)
  Receive Date: 20091002
  Receipt Date: 20081016
  Transmission Date: 20100525
  Serious: No
  Sender: FDA-Public Use
  Company Number: US-ASTRAZENECA-2008UW19928

PATIENT
  Age: 67 Year
  Sex: Female
  Weight: 68 kg

DRUGS (7)
  1. ARIMIDEX [Suspect]
     Route: 048
     Dates: start: 20080910
  2. PREVACID [Concomitant]
  3. ATACAND [Concomitant]
     Route: 048
  4. FISH OIL [Concomitant]
  5. ZYRTEC [Concomitant]
  6. FLONASE [Concomitant]
  7. MULTI-VITAMINS [Concomitant]

REACTIONS (7)
  - ANORECTAL DISCOMFORT [None]
  - CHILLS [None]
  - CONSTIPATION [None]
  - COUGH [None]
  - DIARRHOEA [None]
  - FATIGUE [None]
  - HEADACHE [None]
